FAERS Safety Report 15451308 (Version 1)
Quarter: 2018Q4

REPORT INFORMATION
  Report Type: Report from Study
  Country: TW (occurrence: GB)
  Receive Date: 20181001
  Receipt Date: 20181001
  Transmission Date: 20190204
  Serious: Yes (Other)
  Sender: FDA-Public Use
  Company Number: TW-MYLANLABS-2018M1069661

PATIENT
  Age: 72 Year
  Sex: Male

DRUGS (2)
  1. TOPIRAMATE. [Suspect]
     Active Substance: TOPIRAMATE
     Indication: SUNCT SYNDROME
     Dosage: 12.5 MG/AT NIGHT; THE DOSE WAS INCREMENTED EVERY FIVE DAYS
     Route: 065
  2. TOPIRAMATE. [Suspect]
     Active Substance: TOPIRAMATE
     Dosage: 50 MG/MAXIMUM DOSE
     Route: 065

REACTIONS (2)
  - SUNCT syndrome [Unknown]
  - Condition aggravated [Unknown]
